FAERS Safety Report 19686669 (Version 1)
Quarter: 2021Q3

REPORT INFORMATION
  Report Type: Report from Study
  Country: US (occurrence: US)
  Receive Date: 20210811
  Receipt Date: 20210811
  Transmission Date: 20211014
  Serious: Yes (Death)
  Sender: FDA-Public Use
  Company Number: US-PFIZER INC-202101004023

PATIENT

DRUGS (2)
  1. BERZOSERTIB [Suspect]
     Active Substance: BERZOSERTIB
     Indication: PROSTATE CANCER METASTATIC
     Dosage: 90 MG/M2 DAYS 2, 9, EVERY 21 DAYS
  2. CARBOPLATIN. [Suspect]
     Active Substance: CARBOPLATIN
     Indication: PROSTATE CANCER METASTATIC
     Dosage: AUC 5 DAY 1, EVERY 21 DAYS

REACTIONS (1)
  - Sepsis [Fatal]
